FAERS Safety Report 19513060 (Version 1)
Quarter: 2021Q3

REPORT INFORMATION
  Report Type: Spontaneous
  Country: CA (occurrence: CA)
  Receive Date: 20210709
  Receipt Date: 20210709
  Transmission Date: 20211014
  Serious: Yes (Life-Threatening, Hospitalization)
  Sender: FDA-Public Use
  Company Number: CA-AMERICAN REGENT INC-2021001746

PATIENT
  Age: 19 Year
  Sex: Female
  Weight: 39 kg

DRUGS (1)
  1. VENOFER [Suspect]
     Active Substance: IRON SUCROSE
     Indication: IRON DEFICIENCY ANAEMIA
     Dosage: 300 MILLIGRAM
     Route: 042

REACTIONS (6)
  - Oxygen saturation decreased [Unknown]
  - Dizziness [Unknown]
  - Cyanosis [Unknown]
  - Cough [Unknown]
  - Hypotension [Unknown]
  - Oedema peripheral [Unknown]
